FAERS Safety Report 8597644-2 (Version None)
Quarter: 2012Q3

REPORT INFORMATION
  Report Type: 
  Country: None (occurrence: None)
  Receive Date: 20120816
  Receipt Date: 20120810
  Transmission Date: 20120928
  Serious: Yes (Hospitalization)
  Sender: FDA-Public Use
  Company Number: FR-PFIZER INC-2012195231

PATIENT
  Age: 17 Year
  Sex: Female

DRUGS (5)
  1. ADVIL [Suspect]
     Dosage: 600 MG TOTAL DOSE
     Route: 048
     Dates: start: 20120724, end: 20120725
  2. ADVIL [Suspect]
     Dosage: UNK
  3. KETOPROFEN [Suspect]
     Dosage: 100 MG
     Dates: start: 20120724, end: 20120724
  4. OMEPRAZOLE [Suspect]
     Dosage: 200 MG
     Route: 048
     Dates: start: 20120723, end: 20120723
  5. KETOPROFEN [Suspect]
     Dosage: 200 MG
     Route: 048
     Dates: start: 20120723, end: 20120723

REACTIONS (2)
  - TUBULOINTERSTITIAL NEPHRITIS [None]
  - RENAL FAILURE ACUTE [None]
